FAERS Safety Report 9713940 (Version 2)
Quarter: 2015Q3

REPORT INFORMATION
  Report Type: Spontaneous
  Country: US (occurrence: US)
  Receive Date: 20131126
  Receipt Date: 20150803
  Transmission Date: 20151125
  Serious: No
  Sender: FDA-Public Use
  Company Number: US-GILEAD-2008-0018157

PATIENT
  Age: 60 Year
  Sex: Female
  Weight: 113.4 kg

DRUGS (16)
  1. LETAIRIS [Suspect]
     Active Substance: AMBRISENTAN
     Indication: PULMONARY ARTERIAL HYPERTENSION
     Route: 048
     Dates: start: 20080617
  2. METOLAZONE. [Concomitant]
     Active Substance: METOLAZONE
     Route: 048
  3. SYNTHROID [Concomitant]
     Active Substance: LEVOTHYROXINE SODIUM
     Route: 048
  4. TEMAZEPAM. [Concomitant]
     Active Substance: TEMAZEPAM
     Route: 048
  5. REVATIO [Concomitant]
     Active Substance: SILDENAFIL CITRATE
     Route: 048
  6. POTASSIUM CHLORIDE. [Concomitant]
     Active Substance: POTASSIUM CHLORIDE
     Route: 048
  7. ASPIRIN. [Concomitant]
     Active Substance: ASPIRIN
     Route: 048
  8. OXYGEN. [Concomitant]
     Active Substance: OXYGEN
     Route: 055
  9. ASA/CAFFEINE/BUTALBITAL [Concomitant]
     Route: 048
  10. ALDACTONE [Concomitant]
     Active Substance: SPIRONOLACTONE
     Route: 048
  11. LASIX [Concomitant]
     Active Substance: FUROSEMIDE
     Route: 048
  12. SOMA [Concomitant]
     Active Substance: CARISOPRODOL
     Route: 048
  13. HYDROCODONE [Concomitant]
     Active Substance: HYDROCODONE
     Route: 048
  14. SINGULAIR [Concomitant]
     Active Substance: MONTELUKAST SODIUM
     Route: 048
  15. TRAMADOL. [Concomitant]
     Active Substance: TRAMADOL
     Route: 048
  16. LEXAPRO [Concomitant]
     Active Substance: ESCITALOPRAM OXALATE
     Route: 048

REACTIONS (2)
  - Myalgia [Unknown]
  - Liver function test abnormal [Unknown]
